FAERS Safety Report 6275973-5 (Version None)
Quarter: 2009Q3

REPORT INFORMATION
  Report Type: 
  Country: None (occurrence: None)
  Receive Date: 20090720
  Receipt Date: 20090706
  Transmission Date: 20100115
  Serious: Yes (Hospitalization, Other)
  Sender: FDA-Public Use
  Company Number: 2009SP015428

PATIENT
  Age: 43 Year
  Sex: Male

DRUGS (4)
  1. CLARITIN [Suspect]
     Dosage: PO
     Route: 048
     Dates: start: 20090613
  2. TRIAMCINOLONE ACETONIDE [Suspect]
     Indication: SEASONAL ALLERGY
     Dosage: NAS
     Route: 045
  3. EXCEDRIN [Concomitant]
  4. VITAMINS [Concomitant]

REACTIONS (13)
  - ABDOMINAL DISCOMFORT [None]
  - CHEST PAIN [None]
  - DECREASED APPETITE [None]
  - DIARRHOEA [None]
  - DIZZINESS [None]
  - DYSPEPSIA [None]
  - DYSPNOEA [None]
  - HOT FLUSH [None]
  - HYPERHIDROSIS [None]
  - MICTURITION URGENCY [None]
  - NAUSEA [None]
  - PARAESTHESIA [None]
  - TREATMENT NONCOMPLIANCE [None]
